FAERS Safety Report 9425599 (Version 1)
Quarter: 2013Q3

REPORT INFORMATION
  Report Type: Spontaneous
  Country: US (occurrence: US)
  Receive Date: 20130729
  Receipt Date: 20130729
  Transmission Date: 20140515
  Serious: No
  Sender: FDA-Public Use
  Company Number: US-MYLANLABS-2013S1007052

PATIENT
  Sex: 0
  Weight: 71.67 kg

DRUGS (6)
  1. LEVOTHYROXINE SODIUM [Suspect]
     Indication: THYROID DISORDER
     Dosage: ON AN EMPTY STOMACH
     Dates: end: 2011
  2. HYZAAR [Concomitant]
     Indication: HYPERTENSION
     Dates: start: 1990
  3. SINGULAR [Concomitant]
     Indication: ASTHMA
  4. ST JOHNS WORT [Concomitant]
     Indication: DEPRESSION
  5. VITAMINS [Concomitant]
  6. VITAMINS [Concomitant]

REACTIONS (5)
  - Dysphagia [Recovered/Resolved]
  - Dyspnoea [Recovered/Resolved]
  - Dizziness [Recovered/Resolved]
  - Presyncope [Recovered/Resolved]
  - Choking sensation [Recovered/Resolved]
